FAERS Safety Report 16755230 (Version 1)
Quarter: 2019Q3

REPORT INFORMATION
  Report Type: Spontaneous
  Country: US (occurrence: US)
  Receive Date: 20190829
  Receipt Date: 20190829
  Transmission Date: 20191005
  Serious: Yes (Hospitalization, Other)
  Sender: FDA-Public Use
  Company Number: US-ACTELION-A-CH2019-194686

PATIENT
  Age: 15 Year
  Sex: Female

DRUGS (20)
  1. NITRIC OXIDE. [Concomitant]
     Active Substance: NITRIC OXIDE
  2. SPIRONOLACTONE. [Concomitant]
     Active Substance: SPIRONOLACTONE
  3. OPSUMIT [Suspect]
     Active Substance: MACITENTAN
     Dosage: 5 MG, QD
     Route: 048
  4. VITAMIN A [Concomitant]
     Active Substance: VITAMIN A
  5. TREPROSTINIL. [Concomitant]
     Active Substance: TREPROSTINIL
     Dosage: 2.1 NG/KG, PER MIN
     Route: 058
  6. TREPROSTINIL. [Concomitant]
     Active Substance: TREPROSTINIL
     Dosage: 23.5 NG/KG, PER MIN
     Route: 058
  7. TREPROSTINIL. [Concomitant]
     Active Substance: TREPROSTINIL
     Dosage: 21.5 NG/KG, PER MIN
     Route: 058
  8. COENZYME [Concomitant]
     Active Substance: UBIDECARENONE
     Dosage: 200 MG, QD
  9. MILRINONE [Concomitant]
     Active Substance: MILRINONE
     Dosage: 0.3MCG/KG/MIN
  10. OPSUMIT [Suspect]
     Active Substance: MACITENTAN
     Indication: PORTOPULMONARY HYPERTENSION
     Dosage: 10 MG, QD
     Route: 048
  11. OPSUMIT [Suspect]
     Active Substance: MACITENTAN
     Dosage: UNK
  12. PHYTONADIONE. [Concomitant]
     Active Substance: PHYTONADIONE
     Dosage: 5 MG, BID
  13. VITAMIN D [Concomitant]
     Active Substance: VITAMIN D NOS
  14. PROPRANOLOL [Concomitant]
     Active Substance: PROPRANOLOL HYDROCHLORIDE
     Dosage: 30 MG, BID
  15. ZINC SULFATE. [Concomitant]
     Active Substance: ZINC SULFATE
     Dosage: 110 MG, QD
  16. VITAMIN E [Concomitant]
     Active Substance: .ALPHA.-TOCOPHEROL
  17. TREPROSTINIL. [Concomitant]
     Active Substance: TREPROSTINIL
     Dosage: UNK
     Route: 058
  18. TREPROSTINIL. [Concomitant]
     Active Substance: TREPROSTINIL
     Dosage: UNK
     Route: 042
  19. TADALAFIL. [Concomitant]
     Active Substance: TADALAFIL
     Dosage: 40 MG, QD
  20. OXYGEN. [Concomitant]
     Active Substance: OXYGEN
     Dosage: UNK L

REACTIONS (3)
  - Cholecystitis acute [Unknown]
  - Liver transplant [Unknown]
  - Catheterisation cardiac [Unknown]
